FAERS Safety Report 18486654 (Version 1)
Quarter: 2020Q4

REPORT INFORMATION
  Report Type: Spontaneous
  Country: NO (occurrence: NO)
  Receive Date: 20201110
  Receipt Date: 20201110
  Transmission Date: 20210114
  Serious: Yes (Other)
  Sender: FDA-Public Use
  Company Number: NO-B.I. PHARMACEUTICALS,INC./RIDGEFIELD-2020-BI-059126

PATIENT
  Age: 45 Year
  Sex: Female

DRUGS (4)
  1. KESTINE [Concomitant]
     Active Substance: EBASTINE
     Indication: HYPERSENSITIVITY
     Dosage: 20 MG X 1
  2. SOMAC [Concomitant]
     Active Substance: PANTOPRAZOLE SODIUM
     Indication: GASTROOESOPHAGEAL REFLUX DISEASE
     Dosage: 20 MG X 1. START DATE: //2016
  3. ATROVENT [Suspect]
     Active Substance: IPRATROPIUM BROMIDE
     Indication: ASTHMA
     Dosage: START DATE: //2020
     Route: 055
     Dates: start: 2020
  4. AIMOVIG [Suspect]
     Active Substance: ERENUMAB-AOOE
     Indication: MIGRAINE
     Dosage: 70 MG EVERY 4. WEEK
     Route: 058
     Dates: start: 20200326, end: 20200926

REACTIONS (6)
  - Asthma [Recovering/Resolving]
  - Constipation [Recovered/Resolved]
  - Chronic obstructive pulmonary disease [Recovering/Resolving]
  - Drug interaction [Recovered/Resolved]
  - Nausea [Recovered/Resolved]
  - Constipation [Recovered/Resolved]

NARRATIVE: CASE EVENT DATE: 202004
